FAERS Safety Report 21652408 (Version 7)
Quarter: 2023Q1

REPORT INFORMATION
  Report Type: Report from Study
  Country: FR (occurrence: FR)
  Receive Date: 20221128
  Receipt Date: 20230327
  Transmission Date: 20230418
  Serious: Yes (Other)
  Sender: FDA-Public Use
  Company Number: FR-GILEAD-2022-0605501

PATIENT
  Sex: Female
  Weight: 77 kg

DRUGS (12)
  1. SACITUZUMAB GOVITECAN-HZIY [Suspect]
     Active Substance: SACITUZUMAB GOVITECAN-HZIY
     Indication: Breast cancer metastatic
     Dosage: 10 MG/KG, CYCLE 1, DAYS 1
     Route: 042
     Dates: start: 20220729
  2. SACITUZUMAB GOVITECAN-HZIY [Suspect]
     Active Substance: SACITUZUMAB GOVITECAN-HZIY
     Dosage: 10 MG/KG, CYCLE 2, DAYS 1,8
     Route: 042
     Dates: start: 20220819, end: 20220826
  3. SACITUZUMAB GOVITECAN-HZIY [Suspect]
     Active Substance: SACITUZUMAB GOVITECAN-HZIY
     Dosage: 10 MG/KG, CYCLE 3, DAYS 1,8
     Route: 042
     Dates: start: 20220909, end: 20220916
  4. SACITUZUMAB GOVITECAN-HZIY [Suspect]
     Active Substance: SACITUZUMAB GOVITECAN-HZIY
     Dosage: 8 MG/KG, CYCLE 4, DAYS 1,8
     Route: 042
     Dates: start: 20220930, end: 20221007
  5. SACITUZUMAB GOVITECAN-HZIY [Suspect]
     Active Substance: SACITUZUMAB GOVITECAN-HZIY
     Dosage: 8 MG/KG, CYCLE 5, DAYS 1,8
     Route: 042
     Dates: start: 20221021, end: 20221028
  6. SACITUZUMAB GOVITECAN-HZIY [Suspect]
     Active Substance: SACITUZUMAB GOVITECAN-HZIY
     Dosage: 10 MG/KG, C6 D1/D8
     Route: 042
     Dates: start: 20221114, end: 20221121
  7. SACITUZUMAB GOVITECAN-HZIY [Suspect]
     Active Substance: SACITUZUMAB GOVITECAN-HZIY
     Dosage: 10 MG/KG, C7 D1/D8
     Route: 042
     Dates: start: 20221205, end: 20221213
  8. SACITUZUMAB GOVITECAN-HZIY [Suspect]
     Active Substance: SACITUZUMAB GOVITECAN-HZIY
     Dosage: 10 MG/KG, C8 D1/D8
     Route: 042
     Dates: start: 20221227, end: 20230103
  9. SACITUZUMAB GOVITECAN-HZIY [Suspect]
     Active Substance: SACITUZUMAB GOVITECAN-HZIY
     Dosage: 10 MG/KG, C9 D1/D8
     Route: 042
     Dates: start: 20230124, end: 20230207
  10. SACITUZUMAB GOVITECAN-HZIY [Suspect]
     Active Substance: SACITUZUMAB GOVITECAN-HZIY
     Dosage: 10 MG/KG, C10 D8
     Route: 042
     Dates: start: 20230214, end: 20230214
  11. SACITUZUMAB GOVITECAN-HZIY [Suspect]
     Active Substance: SACITUZUMAB GOVITECAN-HZIY
     Dosage: 10 MG/KG, C11; D1D8
     Route: 042
     Dates: start: 20230228, end: 20230307
  12. ONDANSETRON [Concomitant]
     Active Substance: ONDANSETRON

REACTIONS (14)
  - Acute kidney injury [Unknown]
  - Cholestasis [Unknown]
  - Taste disorder [Unknown]
  - Fatigue [Unknown]
  - Vomiting [Unknown]
  - Decreased appetite [Unknown]
  - Asthenia [Recovered/Resolved]
  - Ill-defined disorder [Unknown]
  - Presyncope [Unknown]
  - Off label use [Unknown]
  - Inappropriate schedule of product administration [Unknown]
  - Inappropriate schedule of product administration [Unknown]
  - Inappropriate schedule of product administration [Unknown]
  - Off label use [Unknown]

NARRATIVE: CASE EVENT DATE: 20220805
